FAERS Safety Report 9562035 (Version 7)
Quarter: 2013Q4

REPORT INFORMATION
  Report Type: Spontaneous
  Country: JP (occurrence: JP)
  Receive Date: 20130927
  Receipt Date: 20131218
  Transmission Date: 20140711
  Serious: Yes (Other)
  Sender: FDA-Public Use
  Company Number: JP-PFIZER INC-2013275579

PATIENT
  Age: 38 Year
  Sex: Female

DRUGS (20)
  1. CELECOX [Suspect]
     Indication: PAIN
     Dosage: 200 MG, DAILY
     Route: 048
     Dates: start: 20130823, end: 20130830
  2. CELECOX [Suspect]
     Dosage: 400 MG, DAILY
     Route: 048
     Dates: start: 20130831, end: 20130902
  3. VANCOMYCIN HCL [Suspect]
     Indication: STAPHYLOCOCCAL INFECTION
     Dosage: 1000 MG, DAILY
     Route: 041
     Dates: start: 20130724, end: 20130904
  4. ROHYPNOL [Concomitant]
     Dosage: UNK
  5. PREDONINE [Concomitant]
     Dosage: UNK
  6. PENTAGIN [Concomitant]
     Dosage: UNK
  7. CERCINE [Concomitant]
     Dosage: UNK
  8. RIVOTRIL [Concomitant]
     Dosage: UNK
  9. SELBEX [Concomitant]
     Dosage: UNK
  10. PROMAC [Concomitant]
     Dosage: UNK
  11. TAKEPRON [Concomitant]
     Dosage: UNK
  12. URSO [Concomitant]
     Dosage: UNK
  13. ASPARA K [Concomitant]
     Dosage: UNK
  14. PENTASA [Concomitant]
     Dosage: UNK
  15. MAG-LAX [Concomitant]
     Dosage: UNK
  16. PURSENNID [Concomitant]
     Dosage: UNK
  17. LIPITOR [Concomitant]
     Dosage: UNK
  18. BACTRAMIN [Concomitant]
     Dosage: UNK
  19. RESLIN [Concomitant]
     Dosage: UNK
  20. LUNESTA [Concomitant]
     Dosage: UNK

REACTIONS (1)
  - Hepatic function abnormal [Recovering/Resolving]
